FAERS Safety Report 13256929 (Version 1)
Quarter: 2017Q1

REPORT INFORMATION
  Report Type: Spontaneous
  Country: US (occurrence: US)
  Receive Date: 20170221
  Receipt Date: 20170221
  Transmission Date: 20170428
  Serious: Yes (Hospitalization, Other)
  Sender: FDA-Public Use
  Company Number: US-009507513-1109USA02129

PATIENT
  Sex: Female
  Weight: 90.72 kg

DRUGS (4)
  1. FOSAMAX [Suspect]
     Active Substance: ALENDRONATE SODIUM
     Dosage: 10 MG, QD
     Route: 048
     Dates: end: 20090103
  2. ALENDRONATE SODIUM. [Suspect]
     Active Substance: ALENDRONATE SODIUM
     Dosage: 70 MG, QW
     Route: 048
     Dates: start: 20090824, end: 201009
  3. FOSAMAX [Suspect]
     Active Substance: ALENDRONATE SODIUM
     Indication: OSTEOPOROSIS
     Dosage: 70 MG, QW
     Route: 048
     Dates: start: 1996, end: 200906
  4. ALENDRONATE SODIUM. [Suspect]
     Active Substance: ALENDRONATE SODIUM
     Indication: OSTEOPOROSIS
     Dosage: 70 MG, QW
     Route: 048
     Dates: start: 20090114, end: 20090421

REACTIONS (50)
  - Urinary incontinence [Not Recovered/Not Resolved]
  - Tooth fracture [Unknown]
  - Tooth disorder [Unknown]
  - Osteoporosis [Unknown]
  - Diverticulitis [Unknown]
  - Intervertebral disc degeneration [Unknown]
  - Hyperlipidaemia [Not Recovered/Not Resolved]
  - Pulmonary embolism [Not Recovered/Not Resolved]
  - Pulmonary hypertension [Unknown]
  - Pain in extremity [Unknown]
  - Spinal cord haematoma [Unknown]
  - Osteoarthritis [Unknown]
  - Metatarsalgia [Unknown]
  - Parkinson^s disease [Not Recovered/Not Resolved]
  - Rotator cuff syndrome [Unknown]
  - Hypertension [Unknown]
  - Fracture nonunion [Unknown]
  - Cataract [Unknown]
  - Bone abscess [Not Recovered/Not Resolved]
  - Dizziness [Unknown]
  - Spinal column stenosis [Not Recovered/Not Resolved]
  - Large intestine polyp [Unknown]
  - Arteriosclerosis coronary artery [Not Recovered/Not Resolved]
  - Osteopenia [Unknown]
  - Spinal fracture [Unknown]
  - Scoliosis [Unknown]
  - Tendonitis [Unknown]
  - Foot deformity [Unknown]
  - Coronary artery disease [Unknown]
  - Vascular calcification [Unknown]
  - Sciatica [Unknown]
  - Intervertebral disc protrusion [Unknown]
  - Rotator cuff syndrome [Unknown]
  - Dental caries [Unknown]
  - Mental status changes [Recovered/Resolved]
  - Femur fracture [Not Recovered/Not Resolved]
  - Head discomfort [Unknown]
  - Deep vein thrombosis [Not Recovered/Not Resolved]
  - Gastrooesophageal reflux disease [Unknown]
  - Hip fracture [Unknown]
  - Dental caries [Unknown]
  - Foot fracture [Recovering/Resolving]
  - Cellulitis [Not Recovered/Not Resolved]
  - Low turnover osteopathy [Unknown]
  - Rotator cuff syndrome [Unknown]
  - Spinal osteoarthritis [Unknown]
  - Vitamin B12 deficiency [Unknown]
  - Haematuria [Recovered/Resolved]
  - Deep vein thrombosis [Unknown]
  - Blood cholesterol increased [Unknown]

NARRATIVE: CASE EVENT DATE: 200004
